FAERS Safety Report 17816935 (Version 1)
Quarter: 2020Q2

REPORT INFORMATION
  Report Type: Spontaneous
  Country: BR (occurrence: BR)
  Receive Date: 20200522
  Receipt Date: 20200522
  Transmission Date: 20200714
  Serious: Yes (Other)
  Sender: FDA-Public Use
  Company Number: BR-SHIRE-BR202016122

PATIENT

DRUGS (1)
  1. VENVANSE [Suspect]
     Active Substance: LISDEXAMFETAMINE DIMESYLATE
     Indication: ATTENTION DEFICIT HYPERACTIVITY DISORDER
     Dosage: 50 MILLIGRAM, 2X/DAY:BID
     Route: 065

REACTIONS (10)
  - Malaise [Unknown]
  - Depression [Unknown]
  - Product availability issue [Unknown]
  - Condition aggravated [Unknown]
  - Fear [Unknown]
  - Loss of consciousness [Recovering/Resolving]
  - Crying [Unknown]
  - Feeling abnormal [Unknown]
  - Diarrhoea [Recovering/Resolving]
  - Off label use [Unknown]
